FAERS Safety Report 5229642-0 (Version None)
Quarter: 2007Q1

REPORT INFORMATION
  Report Type: 
  Country: None (occurrence: None)
  Receive Date: 20070206
  Receipt Date: 20070108
  Transmission Date: 20070707
  Serious: Yes (Other)
  Sender: FDA-Public Use
  Company Number: FR-RB-005059-07

PATIENT
  Age: 30 Year
  Sex: Male

DRUGS (1)
  1. SUBUTEX [Suspect]
     Indication: DRUG USE FOR UNKNOWN INDICATION
     Dosage: APPROXIMATELY 10 YEARS AGO
     Route: 060

REACTIONS (2)
  - HAND DEFORMITY [None]
  - INTENTIONAL DRUG MISUSE [None]
